FAERS Safety Report 7097895-2 (Version None)
Quarter: 2010Q4

REPORT INFORMATION
  Report Type: 
  Country: None (occurrence: None)
  Receive Date: 20101112
  Receipt Date: 20101103
  Transmission Date: 20110411
  Serious: Yes (Hospitalization, Other)
  Sender: FDA-Public Use
  Company Number: FR-KINGPHARMUSA00001-K201001354

PATIENT
  Age: 31 Year
  Sex: Male
  Weight: 58.6 kg

DRUGS (4)
  1. INTAL [Suspect]
     Indication: INTENTIONAL OVERDOSE
     Dosage: 28 ML, SINGLE
     Route: 048
  2. PABRON GOLD [Suspect]
     Indication: INTENTIONAL OVERDOSE
     Dosage: 30 TABLETS, SINGLE
     Route: 048
  3. VENTOLIN [Suspect]
     Indication: INTENTIONAL OVERDOSE
     Dosage: 10 ML, SINGLE
     Route: 048
  4. MEPTIN [Suspect]
     Indication: INTENTIONAL OVERDOSE
     Dosage: 1.8 ML, SINGLE
     Route: 048

REACTIONS (6)
  - HYPOKALAEMIA [None]
  - INTENTIONAL OVERDOSE [None]
  - NAUSEA [None]
  - SUICIDE ATTEMPT [None]
  - TACHYCARDIA [None]
  - TREMOR [None]
